FAERS Safety Report 5121616-3 (Version None)
Quarter: 2006Q4

REPORT INFORMATION
  Report Type: 
  Country: None (occurrence: None)
  Receive Date: 20061006
  Receipt Date: 20060329
  Transmission Date: 20070319
  Serious: Yes (Hospitalization)
  Sender: FDA-Public Use
  Company Number: JP-AVENTIS-200611044JP

PATIENT
  Age: 29 Year
  Sex: Male
  Weight: 51 kg

DRUGS (7)
  1. LANTUS [Suspect]
     Indication: DIABETES MELLITUS INSULIN-DEPENDENT
     Dosage: DOSE: 6-8 UNITS
     Route: 058
     Dates: start: 20050728, end: 20050823
  2. OPTICLIK (INSULIN INJECTION PEN) [Suspect]
  3. BASEN [Suspect]
     Indication: DIABETES MELLITUS INSULIN-DEPENDENT
     Route: 048
     Dates: start: 20050301, end: 20050815
  4. NOVORAPID [Concomitant]
     Indication: DIABETES MELLITUS INSULIN-DEPENDENT
     Dosage: DOSE: 9-24 UNITS/DAY
     Route: 058
     Dates: start: 20050322, end: 20050914
  5. NOVORAPID [Concomitant]
     Dosage: FREQUENCY: CONTINUOUS
     Route: 058
     Dates: start: 20050914
  6. NOVOLIN N [Concomitant]
     Indication: DIABETES MELLITUS INSULIN-DEPENDENT
     Dosage: DOSE: 6-22 UNITS/DAY
     Route: 058
     Dates: start: 20050322, end: 20050727
  7. NOVOLIN N [Concomitant]
     Route: 058
     Dates: start: 20050824

REACTIONS (4)
  - BLOOD GLUCOSE FLUCTUATION [None]
  - DRUG INEFFECTIVE [None]
  - HEPATOCELLULAR DAMAGE [None]
  - LIVER DISORDER [None]
